FAERS Safety Report 8158235-0 (Version None)
Quarter: 2012Q1

REPORT INFORMATION
  Report Type: 
  Country: None (occurrence: None)
  Receive Date: 20120223
  Receipt Date: 20120217
  Transmission Date: 20120608
  Serious: Yes (Other)
  Sender: FDA-Public Use
  Company Number: JP-BRISTOL-MYERS SQUIBB COMPANY-16319766

PATIENT
  Age: 55 Year
  Sex: Male

DRUGS (8)
  1. METFORMIN HCL [Suspect]
     Indication: TYPE 2 DIABETES MELLITUS
     Route: 048
     Dates: start: 20110830
  2. TORSEMIDE [Concomitant]
     Route: 048
     Dates: start: 20110928
  3. ALLOPURINOL [Concomitant]
     Route: 048
     Dates: start: 20100828
  4. PILSICAINIDE HCL [Concomitant]
     Route: 048
     Dates: start: 20111022, end: 20111111
  5. LANIRAPID [Concomitant]
     Route: 048
     Dates: start: 20111008, end: 20111111
  6. DABIGATRAN ETEXILATE [Concomitant]
     Dosage: 4 CAPS/DAY FROM 28SEP11-300MG
  7. LIVALO [Concomitant]
     Route: 048
     Dates: start: 20110928
  8. ETHYL ICOSAPENTATE [Concomitant]
     Route: 048
     Dates: start: 20110730

REACTIONS (2)
  - CARDIAC FAILURE [None]
  - ATRIAL FIBRILLATION [None]
